FAERS Safety Report 19615834 (Version 1)
Quarter: 2021Q3

REPORT INFORMATION
  Report Type: Spontaneous
  Country: US (occurrence: US)
  Receive Date: 20210727
  Receipt Date: 20210727
  Transmission Date: 20211014
  Serious: Yes (Hospitalization, Other)
  Sender: FDA-Public Use
  Company Number: US-SA-2021SA241793

PATIENT
  Age: 40 Year
  Sex: Female
  Weight: 79 kg

DRUGS (4)
  1. HYDROCODONE [Suspect]
     Active Substance: HYDROCODONE
     Indication: FIBROMYALGIA
     Dosage: UNK MG (TOOK NIGHT BEFORE HOSPITALISATION)
     Route: 048
     Dates: start: 20210613
  2. WELLBUTRIN [Concomitant]
     Active Substance: BUPROPION HYDROCHLORIDE
     Dosage: UNK
     Dates: start: 20200330
  3. ZOLPIDEM TARTRATE. [Suspect]
     Active Substance: ZOLPIDEM TARTRATE
     Indication: FIBROMYALGIA
     Dosage: 5 MG
     Route: 048
     Dates: start: 2020
  4. LYRICA [Concomitant]
     Active Substance: PREGABALIN
     Dosage: UNK
     Dates: start: 20190729

REACTIONS (2)
  - Pneumonia [Recovered/Resolved]
  - Drug abuse [Recovered/Resolved]

NARRATIVE: CASE EVENT DATE: 20210610
